FAERS Safety Report 9266214 (Version 1)
Quarter: 2013Q2

REPORT INFORMATION
  Report Type: Spontaneous
  Country: US (occurrence: US)
  Receive Date: 20130502
  Receipt Date: 20130502
  Transmission Date: 20140414
  Serious: No
  Sender: FDA-Public Use
  Company Number: US-009507513-1304USA017391

PATIENT
  Age: 84 Year
  Sex: Female
  Weight: 36.28 kg

DRUGS (1)
  1. ALENDRONATE SODIUM [Suspect]
     Indication: OSTEOPENIA
     Dosage: UNK, QW
     Route: 048
     Dates: start: 20130318, end: 201304

REACTIONS (1)
  - Diarrhoea [Recovering/Resolving]
